FAERS Safety Report 10685819 (Version 3)
Quarter: 2015Q2

REPORT INFORMATION
  Report Type: Spontaneous
  Country: US (occurrence: US)
  Receive Date: 20141231
  Receipt Date: 20150403
  Transmission Date: 20150821
  Serious: Yes (Other)
  Sender: FDA-Public Use
  Company Number: US-PFIZER INC-2014361635

PATIENT
  Age: 62 Year
  Sex: Female

DRUGS (4)
  1. LYRICA [Suspect]
     Active Substance: PREGABALIN
     Indication: PARAESTHESIA
  2. FLEXERIL [Concomitant]
     Active Substance: CYCLOBENZAPRINE HYDROCHLORIDE
     Indication: MUSCLE SPASMS
     Dosage: 10 MG OF 6TH AS NEEDED
     Route: 048
     Dates: start: 200701
  3. LYRICA [Suspect]
     Active Substance: PREGABALIN
     Indication: SPINAL CORD HERNIATION
     Dosage: UNK
     Route: 048
  4. TYLENOL [Concomitant]
     Active Substance: ACETAMINOPHEN
     Indication: PAIN
     Dosage: 500MG-100MG, 2X/DAY
     Dates: start: 200701

REACTIONS (7)
  - Visual acuity reduced [Recovered/Resolved]
  - Glomerular filtration rate decreased [Recovered/Resolved with Sequelae]
  - Blood glucose increased [Recovered/Resolved with Sequelae]
  - Blood sodium decreased [Unknown]
  - Blindness [Unknown]
  - Blood alkaline phosphatase increased [Unknown]
  - Lipase decreased [Unknown]

NARRATIVE: CASE EVENT DATE: 200704
